FAERS Safety Report 8607310 (Version 2)
Quarter: 2013Q2

REPORT INFORMATION
  Report Type: Spontaneous
  Country: US (occurrence: US)
  Receive Date: 20120611
  Receipt Date: 20130618
  Transmission Date: 20140414
  Serious: Yes (Disabling)
  Sender: FDA-Public Use
  Company Number: US-ASTRAZENECA-2012SE35142

PATIENT
  Age: 18993 Day
  Sex: Female

DRUGS (5)
  1. NEXIUM [Suspect]
     Indication: HYPERCHLORHYDRIA
     Route: 048
     Dates: start: 20100111
  2. CRESTOR [Concomitant]
     Dates: start: 20110610
  3. HYDROCODON -ACETAMNOPHEN [Concomitant]
     Dosage: 5-500 ONE TAB BY MOUTH TWICE A DAY
     Route: 048
     Dates: start: 20110610
  4. ZOLPIDEM TARTRATE [Concomitant]
     Route: 048
     Dates: start: 20100527
  5. SULFAMETHOXAZOLE-TMP DS [Concomitant]
     Dosage: ONE TAB BY MOUTH AT BED TIME
     Route: 048
     Dates: start: 20100527

REACTIONS (6)
  - Diabetes mellitus [Unknown]
  - Osteoporosis [Unknown]
  - Bone disorder [Unknown]
  - Multiple fractures [Unknown]
  - Osteogenesis imperfecta [Unknown]
  - Calcium deficiency [Unknown]
